FAERS Safety Report 12836004 (Version 1)
Quarter: 2016Q4

REPORT INFORMATION
  Report Type: Spontaneous
  Country: BR (occurrence: BR)
  Receive Date: 20161011
  Receipt Date: 20161011
  Transmission Date: 20170207
  Serious: Yes (Other)
  Sender: FDA-Public Use
  Company Number: BR-ELI_LILLY_AND_COMPANY-BR201609011474

PATIENT
  Age: 64 Year
  Sex: Male
  Weight: 86 kg

DRUGS (18)
  1. BISSULFATO DE CLOPIDOGREL [Concomitant]
     Indication: ANTICOAGULANT THERAPY
  2. HUMULIN N [Suspect]
     Active Substance: INSULIN HUMAN
     Indication: TYPE 2 DIABETES MELLITUS
     Dosage: 40 IU, IN FASTING
     Route: 058
     Dates: start: 2010
  3. HUMULIN N [Suspect]
     Active Substance: INSULIN HUMAN
     Dosage: 26 IU, EACH EVENING
     Route: 058
     Dates: start: 2010
  4. METFORMIN [Suspect]
     Active Substance: METFORMIN HYDROCHLORIDE
     Indication: TYPE 2 DIABETES MELLITUS
     Dosage: UNK, UNKNOWN
  5. AAS [Concomitant]
     Active Substance: ASPIRIN
     Indication: CEREBROVASCULAR ACCIDENT
     Dosage: UNK, AFTER LUNCH
     Route: 065
  6. AAS [Concomitant]
     Active Substance: ASPIRIN
     Indication: INFARCTION
  7. AMLODIPINO                         /00972401/ [Concomitant]
     Active Substance: AMLODIPINE BESYLATE
     Dosage: 5 MG, EACH MORNING
     Route: 065
  8. MONOCORDIL [Concomitant]
     Active Substance: ISOSORBIDE MONONITRATE
     Indication: CARDIAC DISORDER
     Dosage: 20 MG, BID
     Route: 065
  9. HUMULIN N [Suspect]
     Active Substance: INSULIN HUMAN
     Dosage: 40 IU, IN FASTING
     Route: 058
  10. SINVASTATINA [Concomitant]
     Active Substance: SIMVASTATIN
     Dosage: 40 MG, EACH EVENING
     Route: 065
  11. LOSARTANA POTASSICA [Concomitant]
     Active Substance: LOSARTAN
     Dosage: 50 MG, BID
     Route: 065
  12. RANITIDINE. [Concomitant]
     Active Substance: RANITIDINE
     Dosage: UNK,  BEFORE BREAKFAST
     Route: 065
  13. HUMULIN N [Suspect]
     Active Substance: INSULIN HUMAN
     Dosage: 26 IU, EACH EVENING
     Route: 058
     Dates: start: 2010
  14. BISSULFATO DE CLOPIDOGREL [Concomitant]
     Indication: CEREBROVASCULAR ACCIDENT
     Dosage: 75 MG, QD
     Route: 065
  15. OMEPRAZOL                          /00661201/ [Concomitant]
     Active Substance: OMEPRAZOLE
     Dosage: UNK, BEFORE BREAKFAST
     Route: 065
  16. HUMULIN R [Suspect]
     Active Substance: INSULIN HUMAN
     Indication: TYPE 2 DIABETES MELLITUS
     Dosage: UNK, OTHER
     Route: 065
  17. BISSULFATO DE CLOPIDOGREL [Concomitant]
     Indication: INFARCTION
  18. ATENOLOL. [Concomitant]
     Active Substance: ATENOLOL
     Dosage: 50 MG, BID
     Route: 065

REACTIONS (7)
  - Carotid artery occlusion [Unknown]
  - Paraesthesia [Unknown]
  - Fatigue [Unknown]
  - Cerebrovascular accident [Unknown]
  - Injection site pain [Unknown]
  - Underdose [Unknown]
  - Gastric disorder [Unknown]

NARRATIVE: CASE EVENT DATE: 201511
